FAERS Safety Report 6430476-X (Version None)
Quarter: 2009Q4

REPORT INFORMATION
  Report Type: 
  Country: None (occurrence: None)
  Receive Date: 20091106
  Receipt Date: 20091102
  Transmission Date: 20100525
  Serious: Yes (Hospitalization)
  Sender: FDA-Public Use
  Company Number: US-ELI_LILLY_AND_COMPANY-US200910004474

PATIENT
  Sex: Female

DRUGS (17)
  1. HUMALOG [Suspect]
     Dates: start: 20050601
  2. HUMALOG [Suspect]
     Dosage: UNK, AS NEEDED
     Dates: start: 20080601
  3. LANTUS [Concomitant]
  4. ALLEGRA [Concomitant]
     Dosage: 180 MG, UNK
  5. PREDNISONE [Concomitant]
     Dosage: UNK, UNK
     Dates: end: 20081114
  6. ALDACTONE [Concomitant]
     Dosage: 50 MG, UNK
  7. LORTAB [Concomitant]
  8. LEVEMIR [Concomitant]
  9. NOVOLOG [Concomitant]
  10. KENALOG [Concomitant]
  11. SENNA [Concomitant]
  12. ZANAFLEX [Concomitant]
  13. PRILOSEC [Concomitant]
  14. INACILIN [Concomitant]
  15. ZANCHOL [Concomitant]
  16. TRICOR [Concomitant]
  17. DANOKRIN [Concomitant]

REACTIONS (19)
  - ALOPECIA [None]
  - ANGIOEDEMA [None]
  - BACK PAIN [None]
  - BLADDER CATHETERISATION [None]
  - BLADDER DISORDER [None]
  - BLOOD CHOLESTEROL INCREASED [None]
  - CATARACT [None]
  - DISTURBANCE IN ATTENTION [None]
  - DRY EYE [None]
  - GAIT DISTURBANCE [None]
  - HIGH DENSITY LIPOPROTEIN DECREASED [None]
  - JOINT LOCK [None]
  - MEMORY IMPAIRMENT [None]
  - MUSCLE SPASMS [None]
  - OEDEMA [None]
  - READING DISORDER [None]
  - SWELLING [None]
  - URETHRAL INJURY [None]
  - URINARY INCONTINENCE [None]
